FAERS Safety Report 14095589 (Version 1)
Quarter: 2017Q4

REPORT INFORMATION
  Report Type: Report from Study
  Country: US (occurrence: US)
  Receive Date: 20171016
  Receipt Date: 20171016
  Transmission Date: 20180321
  Serious: Yes (Death)
  Sender: FDA-Public Use
  Company Number: US-ACTELION-A-US2013-81663

PATIENT
  Age: 84 Year
  Sex: Male

DRUGS (4)
  1. TRACLEER [Suspect]
     Active Substance: BOSENTAN
     Indication: PULMONARY ARTERIAL HYPERTENSION
     Dosage: 125 MG, BID
     Route: 048
     Dates: start: 200301
  2. COUMADIN [Concomitant]
     Active Substance: WARFARIN SODIUM
  3. METOPROLOL. [Concomitant]
     Active Substance: METOPROLOL
  4. LANOXIN [Concomitant]
     Active Substance: DIGOXIN

REACTIONS (4)
  - Pleural effusion [Unknown]
  - Peripheral swelling [Recovering/Resolving]
  - Death [Fatal]
  - Joint swelling [Recovering/Resolving]

NARRATIVE: CASE EVENT DATE: 20171003
